FAERS Safety Report 12407148 (Version 3)
Quarter: 2016Q3

REPORT INFORMATION
  Report Type: Spontaneous
  Country: US (occurrence: US)
  Receive Date: 20160526
  Receipt Date: 20160714
  Transmission Date: 20161109
  Serious: Yes (Other)
  Sender: FDA-Public Use
  Company Number: US-PFIZER INC-2016275055

PATIENT
  Age: 18 Year
  Sex: Male

DRUGS (12)
  1. AMITRIPTYLINE [Suspect]
     Active Substance: AMITRIPTYLINE
     Indication: AGORAPHOBIA
  2. XANAX [Suspect]
     Active Substance: ALPRAZOLAM
     Dosage: 1 MG, 3X/DAY
  3. TRILEPTAL [Concomitant]
     Active Substance: OXCARBAZEPINE
     Dosage: UNK
     Dates: start: 1990
  4. XANAX [Suspect]
     Active Substance: ALPRAZOLAM
     Indication: PANIC ATTACK
     Dosage: 13 MG, DAILY
     Dates: start: 1998
  5. XANAX [Suspect]
     Active Substance: ALPRAZOLAM
     Indication: ANXIETY
     Dosage: 1 MG, DAILY (1 MG 8 DAILY )
     Dates: start: 1990
  6. XANAX [Suspect]
     Active Substance: ALPRAZOLAM
     Indication: AGORAPHOBIA
     Dosage: 2 MG, 4X/DAY
     Dates: start: 2001, end: 2012
  7. WELLBUTRIN [Suspect]
     Active Substance: BUPROPION HYDROCHLORIDE
     Indication: ANXIETY
     Dosage: UNK
  8. AMITRIPTYLINE [Suspect]
     Active Substance: AMITRIPTYLINE
     Indication: ANXIETY
     Dosage: 25 MG, 1X/DAY (AT  BEDTIME)
     Dates: start: 1990
  9. AMITRIPTYLINE [Suspect]
     Active Substance: AMITRIPTYLINE
     Indication: PANIC ATTACK
  10. WELLBUTRIN [Suspect]
     Active Substance: BUPROPION HYDROCHLORIDE
     Indication: PANIC ATTACK
  11. METOPROLOL. [Concomitant]
     Active Substance: METOPROLOL
     Dosage: UNK
     Dates: start: 1990
  12. WELLBUTRIN [Suspect]
     Active Substance: BUPROPION HYDROCHLORIDE
     Indication: AGORAPHOBIA

REACTIONS (3)
  - Seizure [Recovered/Resolved]
  - Prescribed overdose [Unknown]
  - Tremor [Unknown]

NARRATIVE: CASE EVENT DATE: 19900116
